FAERS Safety Report 25331773 (Version 2)
Quarter: 2025Q2

REPORT INFORMATION
  Report Type: Report from Study
  Country: ES (occurrence: ES)
  Receive Date: 20250519
  Receipt Date: 20250608
  Transmission Date: 20250717
  Serious: Yes (Other)
  Sender: ABBVIE
  Company Number: ES-ABBVIE-6262500

PATIENT
  Age: 61 Year
  Sex: Male
  Weight: 65 kg

DRUGS (3)
  1. FOSCARBIDOPA\FOSLEVODOPA [Suspect]
     Active Substance: FOSCARBIDOPA\FOSLEVODOPA
     Indication: Parkinson^s disease
     Route: 058
     Dates: start: 20250429
  2. FOSCARBIDOPA\FOSLEVODOPA [Suspect]
     Active Substance: FOSCARBIDOPA\FOSLEVODOPA
     Route: 058
     Dates: start: 20250505
  3. FOSCARBIDOPA\FOSLEVODOPA [Suspect]
     Active Substance: FOSCARBIDOPA\FOSLEVODOPA
     Route: 058
     Dates: start: 202505, end: 202505

REACTIONS (8)
  - Syncope [Recovering/Resolving]
  - On and off phenomenon [Not Recovered/Not Resolved]
  - Dyskinesia [Not Recovered/Not Resolved]
  - Tremor [Recovered/Resolved]
  - Loss of consciousness [Recovering/Resolving]
  - Poor quality sleep [Unknown]
  - Dizziness [Unknown]
  - Haemodynamic instability [Recovering/Resolving]

NARRATIVE: CASE EVENT DATE: 20250429
